FAERS Safety Report 9448487 (Version 1)
Quarter: 2013Q3

REPORT INFORMATION
  Report Type: Spontaneous
  Country: US (occurrence: GB)
  Receive Date: 20130808
  Receipt Date: 20130808
  Transmission Date: 20140515
  Serious: Yes (Other)
  Sender: FDA-Public Use
  Company Number: GB-BANPHARM-20131544

PATIENT
  Age: 60 Year
  Sex: Female
  Weight: 77.5 kg

DRUGS (1)
  1. IBUPROFEN UNKNOWN PRODUCT [Suspect]
     Route: 065

REACTIONS (1)
  - Gastrointestinal haemorrhage [Unknown]
